FAERS Safety Report 11376983 (Version 1)
Quarter: 2015Q3

REPORT INFORMATION
  Report Type: Spontaneous
  Country: US (occurrence: US)
  Receive Date: 20150813
  Receipt Date: 20150813
  Transmission Date: 20151125
  Serious: Yes (Other)
  Sender: FDA-Public Use
  Company Number: US-SA-2015SA120302

PATIENT
  Sex: Male

DRUGS (1)
  1. MIPOMERSEN SODIUM [Suspect]
     Active Substance: MIPOMERSEN SODIUM
     Route: 065
     Dates: start: 201406

REACTIONS (1)
  - Loss of consciousness [Unknown]

NARRATIVE: CASE EVENT DATE: 201406
